FAERS Safety Report 9761793 (Version 1)
Quarter: 2013Q4

REPORT INFORMATION
  Report Type: Spontaneous
  Country: BR (occurrence: None)
  Receive Date: 20131213
  Receipt Date: 20131213
  Transmission Date: 20140711
  Serious: Yes (Hospitalization)
  Sender: FDA-Public Use
  Company Number: SYM-2013-13703

PATIENT
  Age: 27 Year
  Sex: Female

DRUGS (3)
  1. FLUOROURACIL (FLUOROURACIL) (FLUOROURACIL) [Suspect]
     Indication: COLORECTAL ADENOCARCINOMA
  2. OXALIPLATIN (OXALIPLATIN) (OXALIPLATIN) [Suspect]
     Indication: COLORECTAL ADENOCARCINOMA
  3. LEUCOVORIN (FOLINIC ACID) (FOLINIC ACID) [Suspect]
     Indication: COLORECTAL ADENOCARCINOMA

REACTIONS (2)
  - Posterior reversible encephalopathy syndrome [None]
  - Hypertension [None]
